FAERS Safety Report 8256621-1 (Version None)
Quarter: 2012Q2

REPORT INFORMATION
  Report Type: 
  Country: None (occurrence: None)
  Receive Date: 20120403
  Receipt Date: 20120326
  Transmission Date: 20120825
  Serious: Yes (Other)
  Sender: FDA-Public Use
  Company Number: US-BAYER-2012-029783

PATIENT
  Age: 26 Year
  Sex: Female

DRUGS (2)
  1. YASMIN [Suspect]
     Dosage: UNK
     Route: 048
     Dates: start: 20090801, end: 20100101
  2. YAZ [Suspect]
     Dosage: UNK
     Route: 048
     Dates: start: 20090801, end: 20100101

REACTIONS (4)
  - INJURY [None]
  - EMOTIONAL DISTRESS [None]
  - CHOLELITHIASIS [None]
  - PAIN [None]
